FAERS Safety Report 21549375 (Version 1)
Quarter: 2022Q4

REPORT INFORMATION
  Report Type: Spontaneous
  Country: JP (occurrence: JP)
  Receive Date: 20221103
  Receipt Date: 20221103
  Transmission Date: 20230113
  Serious: Yes (Other)
  Sender: FDA-Public Use
  Company Number: JP-ViiV Healthcare Limited-JP2022JPN156348AA

PATIENT

DRUGS (6)
  1. TENOFOVIR DISOPROXIL FUMARATE [Suspect]
     Active Substance: TENOFOVIR DISOPROXIL FUMARATE
     Indication: Chronic hepatitis B
     Dosage: 300 MG/DAY
     Dates: end: 201804
  2. ZEFIX [Suspect]
     Active Substance: LAMIVUDINE
     Indication: Chronic hepatitis B
     Dosage: 100 MG/DAY
     Dates: start: 200609, end: 200710
  3. ZEFIX [Suspect]
     Active Substance: LAMIVUDINE
     Dosage: UNK
     Dates: start: 201309
  4. ENTECAVIR [Suspect]
     Active Substance: ENTECAVIR
     Indication: Chronic hepatitis B
     Dosage: 0.5 MG/DAY
     Dates: start: 200710, end: 200902
  5. ENTECAVIR [Suspect]
     Active Substance: ENTECAVIR
     Dosage: 0.5 MG/DAY
     Dates: start: 201005, end: 201804
  6. TENOFOVIR ALAFENAMIDE FUMARATE [Concomitant]
     Active Substance: TENOFOVIR ALAFENAMIDE FUMARATE
     Indication: Chronic hepatitis B
     Dosage: 25 MG/DAY
     Dates: start: 201804

REACTIONS (5)
  - Pathogen resistance [Unknown]
  - Ascites [Unknown]
  - Drug resistance [Unknown]
  - Hepatitis B DNA increased [Unknown]
  - Fatigue [Unknown]

NARRATIVE: CASE EVENT DATE: 20071001
